FAERS Safety Report 16039245 (Version 1)
Quarter: 2019Q1

REPORT INFORMATION
  Report Type: Spontaneous
  Country: BR (occurrence: BR)
  Receive Date: 20190306
  Receipt Date: 20190306
  Transmission Date: 20190418
  Serious: Yes (Other)
  Sender: FDA-Public Use
  Company Number: BR-CORDEN PHARMA LATINA S.P.A.-BR-2019COR000054

PATIENT
  Age: 64 Year
  Sex: Female

DRUGS (3)
  1. RADIOTHERAPY [Suspect]
     Active Substance: RADIATION THERAPY
     Indication: NEUROENDOCRINE TUMOUR
     Dosage: UNK
     Route: 065
  2. ETOPOSIDE. [Suspect]
     Active Substance: ETOPOSIDE
     Indication: NEUROENDOCRINE TUMOUR
     Dosage: UNK
     Route: 065
  3. CARBOPLATIN. [Suspect]
     Active Substance: CARBOPLATIN
     Indication: NEUROENDOCRINE TUMOUR
     Dosage: UNK
     Route: 065

REACTIONS (1)
  - Acute promyelocytic leukaemia [Unknown]
